FAERS Safety Report 16114404 (Version 3)
Quarter: 2021Q2

REPORT INFORMATION
  Report Type: Spontaneous
  Country: US (occurrence: US)
  Receive Date: 20190325
  Receipt Date: 20210413
  Transmission Date: 20210716
  Serious: No
  Sender: FDA-Public Use
  Company Number: US-ALLERGAN-1909187US

PATIENT
  Sex: Female

DRUGS (2)
  1. LATISSE [Suspect]
     Active Substance: BIMATOPROST
     Indication: GROWTH OF EYELASHES
     Dosage: 4 GTT, QD
     Route: 061
     Dates: start: 201901
  2. LATISSE [Suspect]
     Active Substance: BIMATOPROST
     Dosage: 1 GTT EACH UPPER LID EYELASHES

REACTIONS (3)
  - Incorrect dose administered [Unknown]
  - Madarosis [Not Recovered/Not Resolved]
  - Drug ineffective [Unknown]

NARRATIVE: CASE EVENT DATE: 201902
